FAERS Safety Report 9542315 (Version 2)
Quarter: 2014Q2

REPORT INFORMATION
  Report Type: Spontaneous
  Country: IT (occurrence: None)
  Receive Date: 20130918
  Receipt Date: 20140410
  Transmission Date: 20141212
  Serious: Yes (Other)
  Sender: FDA-Public Use
  Company Number: AUR-APL-2013-06770

PATIENT
  Age: 43 Year
  Sex: Female

DRUGS (1)
  1. CITALOPRAM [Suspect]
     Indication: PRODUCT USED FOR UNKNOWN INDICATION
     Dosage: 8 DROPS DAILY (8 GTT,TOTAL)
     Route: 048
     Dates: start: 20130704, end: 20130704

REACTIONS (5)
  - Abdominal pain upper [None]
  - Paraesthesia oral [None]
  - Panic attack [None]
  - Disease recurrence [None]
  - Vomiting [None]
